FAERS Safety Report 9736951 (Version 1)
Quarter: 2013Q4

REPORT INFORMATION
  Report Type: Report from Study
  Country: AR (occurrence: AR)
  Receive Date: 20131206
  Receipt Date: 20131206
  Transmission Date: 20140711
  Serious: Yes (Other)
  Sender: FDA-Public Use
  Company Number: PHHY2013AR142630

PATIENT
  Sex: Female

DRUGS (2)
  1. DIOVAN [Suspect]
     Indication: HYPERTENSION
     Dosage: 80 MG, DAILY
     Route: 048
  2. DIOVAN [Suspect]
     Dosage: 2 DF (80MG), DAILY AS NEEDED

REACTIONS (4)
  - Fall [Unknown]
  - Hip fracture [Recovering/Resolving]
  - Blood pressure systolic increased [Recovered/Resolved]
  - Infection [Recovering/Resolving]
